FAERS Safety Report 4398341-X (Version None)
Quarter: 2004Q3

REPORT INFORMATION
  Report Type: 
  Country: None (occurrence: None)
  Receive Date: 20040714
  Receipt Date: 20040714
  Transmission Date: 20050211
  Serious: Yes (Hospitalization)
  Sender: FDA-Public Use
  Company Number: None

PATIENT
  Age: 68 Year
  Sex: Female
  Weight: 136.0791 kg

DRUGS (7)
  1. AMIODARONE HCL [Suspect]
     Dosage: 200 MG PO QD
     Route: 048
  2. ZOCOR [Concomitant]
  3. ASPIRIN [Concomitant]
  4. HYDROCHLOROTHIAZIDE [Concomitant]
  5. PREMARIN [Concomitant]
  6. COVERA-HS [Concomitant]
  7. DETROL LA [Concomitant]

REACTIONS (4)
  - ATRIAL FIBRILLATION [None]
  - HYPERTHYROIDISM [None]
  - OEDEMA PERIPHERAL [None]
  - WEIGHT INCREASED [None]
